FAERS Safety Report 4501991-0 (Version None)
Quarter: 2004Q4

REPORT INFORMATION
  Report Type: 
  Country: None (occurrence: None)
  Receive Date: 20041109
  Receipt Date: 20041025
  Transmission Date: 20050328
  Serious: Yes (Hospitalization)
  Sender: FDA-Public Use
  Company Number: 2004241128BR

PATIENT
  Age: 34 Year
  Sex: Female

DRUGS (4)
  1. DELTA-CORTEF [Suspect]
     Indication: COLITIS ULCERATIVE
     Dosage: SEE IMAGE
     Route: 048
  2. AZATHIOPRINE [Concomitant]
  3. SULFASALAZINE [Concomitant]
  4. AMINOSALICYLIC ACID (AMINOSALICYLIC ACID) [Concomitant]

REACTIONS (5)
  - BENIGN INTRACRANIAL HYPERTENSION [None]
  - EMPTY SELLA SYNDROME [None]
  - HEADACHE [None]
  - PAPILLOEDEMA [None]
  - VISION BLURRED [None]
